FAERS Safety Report 11211869 (Version 1)
Quarter: 2015Q2

REPORT INFORMATION
  Report Type: Report from Study
  Country: FI (occurrence: FI)
  Receive Date: 20150623
  Receipt Date: 20150623
  Transmission Date: 20150821
  Serious: Yes (Death)
  Sender: FDA-Public Use
  Company Number: FI-MYLANLABS-2015M1019804

PATIENT

DRUGS (6)
  1. TEMAZEPAM. [Suspect]
     Active Substance: TEMAZEPAM
     Indication: PRODUCT USED FOR UNKNOWN INDICATION
     Route: 048
  2. BUPRENORPHINE [Suspect]
     Active Substance: BUPRENORPHINE
     Indication: PRODUCT USED FOR UNKNOWN INDICATION
     Route: 048
  3. DIAZEPAM. [Concomitant]
     Active Substance: DIAZEPAM
     Route: 048
  4. OXAZEPAM. [Concomitant]
     Active Substance: OXAZEPAM
     Route: 048
  5. PREGABALIN. [Suspect]
     Active Substance: PREGABALIN
     Indication: PRODUCT USED FOR UNKNOWN INDICATION
     Route: 048
  6. NORDAZEPAM [Concomitant]
     Active Substance: NORDAZEPAM
     Route: 048

REACTIONS (3)
  - Toxicity to various agents [Fatal]
  - Drug abuse [Fatal]
  - Accidental overdose [Fatal]
